FAERS Safety Report 8003233-0 (Version None)
Quarter: 2011Q4

REPORT INFORMATION
  Report Type: 
  Country: None (occurrence: None)
  Receive Date: 20111222
  Receipt Date: 20111216
  Transmission Date: 20120403
  Serious: Yes (Other)
  Sender: FDA-Public Use
  Company Number: PHHY2011US68626

PATIENT
  Sex: Female

DRUGS (30)
  1. DIAZEPAM [Concomitant]
     Dosage: 10 MG, UNK
     Dates: start: 20110706
  2. PROZAC [Concomitant]
     Dosage: 10 MG, UNK
     Route: 048
     Dates: start: 20110408
  3. VITAMIN B COMPLEX CAP [Concomitant]
     Dosage: UNK UKN, UNK
     Route: 048
     Dates: start: 20110408
  4. RETIN-A [Concomitant]
     Dosage: 0.025 %, UNK
     Route: 061
     Dates: start: 20110803
  5. REBIF [Concomitant]
     Dosage: UNK UKN, UNK
     Route: 058
     Dates: start: 20110803
  6. DIAZEPAM [Concomitant]
     Dosage: UNK
     Dates: start: 20110408
  7. PROVIGIL [Concomitant]
     Indication: FATIGUE
     Dosage: 100 MG, BID
     Route: 048
     Dates: start: 20110509, end: 20110628
  8. PROVIGIL [Concomitant]
     Dosage: 100 MG, BID
     Route: 048
     Dates: start: 20100609
  9. VITAMIN D [Concomitant]
     Dosage: UNK UKN, UNK
     Route: 048
     Dates: start: 20110408
  10. CALCIUM CARBONATE [Concomitant]
     Dosage: UNK UKN, UNK
     Dates: start: 20110408
  11. GILENYA [Suspect]
     Indication: MULTIPLE SCLEROSIS
     Dosage: 0.5 MG, QD
     Route: 048
     Dates: start: 20110412, end: 20110726
  12. METHYLPHENIDATE [Concomitant]
     Dosage: 10 MG, BID
     Route: 048
     Dates: start: 20110728
  13. CALCIUM [Concomitant]
     Dosage: UNK UKN, UNK
  14. VITAMIN D [Concomitant]
     Dosage: UNK UKN, UNK
  15. NEURONTIN [Concomitant]
     Dosage: UNK UKN, UNK
     Dates: end: 20110825
  16. XIBROM [Concomitant]
     Dosage: 0.09 %, BID BOTH EYES
  17. ALBUTEROL [Concomitant]
     Dosage: UNK UKN, UNK
     Dates: start: 20110803
  18. HYDROCODONE [Concomitant]
     Dosage: 10-200 MG, EVERY FOUR HOUR
     Route: 048
     Dates: start: 20110803
  19. FLUOXETINE [Concomitant]
     Dosage: 20 MG, DAILY
     Route: 048
     Dates: start: 20110803
  20. FLUOXETINE [Concomitant]
     Dosage: 20 MG, UNK
     Dates: end: 20110825
  21. GABAPENTIN [Concomitant]
     Dosage: 100 MG, UNK
     Dates: end: 20110825
  22. COPAXONE [Concomitant]
     Dosage: 20 MG/ML, DAILY
     Dates: end: 20110628
  23. FLUTICASONE FUROATE [Concomitant]
     Dosage: 50 UKN, UNK
     Route: 048
     Dates: start: 20110803
  24. ALENDRONATE SODIUM [Concomitant]
     Dosage: 17.5 MG, TID
     Route: 048
     Dates: start: 20110803
  25. AMANTADINE HCL [Concomitant]
     Dosage: 100 MG, BID
     Route: 048
     Dates: start: 20100708
  26. ACULAR [Concomitant]
     Dosage: 0.5 %, QID ONE DROP IN BOTH EYES
  27. VICODIN [Concomitant]
     Indication: PYREXIA
  28. TIZANIDINE HCL [Concomitant]
     Dosage: 4 MG, DAILY
     Route: 048
     Dates: start: 20110608, end: 20110825
  29. ACTONEL [Concomitant]
     Dosage: 35 MG, UNK
  30. VICODIN [Concomitant]
     Indication: PAIN
     Dosage: 5-325MG EVERY 8 HOURS
     Route: 048
     Dates: start: 20110803

REACTIONS (6)
  - VITRITIS [None]
  - VISUAL ACUITY REDUCED [None]
  - PRESBYOPIA [None]
  - MACULAR OEDEMA [None]
  - VISION BLURRED [None]
  - DRY EYE [None]
